FAERS Safety Report 4939271-1 (Version None)
Quarter: 2006Q1

REPORT INFORMATION
  Report Type: 
  Country: None (occurrence: None)
  Receive Date: 20060306
  Receipt Date: 20060220
  Transmission Date: 20060701
  Serious: Yes (Hospitalization)
  Sender: FDA-Public Use
  Company Number: 2006016134

PATIENT
  Sex: Male

DRUGS (3)
  1. VFEND [Suspect]
     Indication: CANDIDIASIS
  2. FLUCONAZOLE [Suspect]
     Indication: CANDIDIASIS
  3. CANCIDAS [Suspect]
     Indication: CANDIDIASIS

REACTIONS (6)
  - BRADYCARDIA [None]
  - DRUG INTERACTION [None]
  - ELECTROCARDIOGRAM QT PROLONGED [None]
  - EXTRASYSTOLES [None]
  - PYREXIA [None]
  - TORSADE DE POINTES [None]
